FAERS Safety Report 6019935-1 (Version None)
Quarter: 2008Q4

REPORT INFORMATION
  Report Type: 
  Country: None (occurrence: None)
  Receive Date: 20081223
  Receipt Date: 20081211
  Transmission Date: 20090506
  Serious: Yes (Other)
  Sender: FDA-Public Use
  Company Number: 231467K08USA

PATIENT
  Age: 65 Year
  Sex: Female
  Weight: 80 kg

DRUGS (16)
  1. REBIF [Suspect]
     Indication: MULTIPLE SCLEROSIS
     Dosage: 44 MCG, 3 IN 1 WEEKS, SUBCUTANEOUS
     Route: 058
     Dates: start: 20060101, end: 20070601
  2. REBIF [Suspect]
     Indication: MULTIPLE SCLEROSIS
     Dosage: 44 MCG, 3 IN 1 WEEKS, SUBCUTANEOUS
     Route: 058
     Dates: start: 20081015
  3. CELLCEPT [Suspect]
     Indication: MULTIPLE SCLEROSIS
     Dates: end: 20080201
  4. LEVOTHYROXINE (LEVOTHYROXINE /00068001/) [Concomitant]
  5. ALEVE (CAPLET) [Concomitant]
  6. XANAFLEX (TIZANIDINE) [Concomitant]
  7. DITROPAN XL (OXYVUTYNIN /00538901/) [Concomitant]
  8. ARICEPT [Concomitant]
  9. AMBIEN CR [Concomitant]
  10. PROVIGIL [Concomitant]
  11. SINGULAIR (MONTELUKAST /01362601/) [Concomitant]
  12. SYMBICORT (BUDESNONIDE W/FORMOTEROL FUMARATE) [Concomitant]
  13. ANTIVERT [Concomitant]
  14. LODINE (BIDOLAC) [Concomitant]
  15. MITRX (SUMATRIPTAN) [Concomitant]
  16. LEXAPRO [Concomitant]

REACTIONS (8)
  - BREAST CANCER [None]
  - CATHETER RELATED INFECTION [None]
  - FEELING ABNORMAL [None]
  - INFLUENZA LIKE ILLNESS [None]
  - INJECTION SITE ERYTHEMA [None]
  - INJECTION SITE PAIN [None]
  - SEPSIS [None]
  - STAPHYLOCOCCAL INFECTION [None]
